FAERS Safety Report 17494217 (Version 1)
Quarter: 2020Q1

REPORT INFORMATION
  Report Type: Spontaneous
  Country: US (occurrence: US)
  Receive Date: 20200221
  Receipt Date: 20200221
  Transmission Date: 20200409
  Serious: No
  Sender: FDA-Public Use
  Company Number: None

PATIENT
  Sex: Female

DRUGS (1)
  1. OLUMIANT [Suspect]
     Active Substance: BARICITINIB
     Indication: RHEUMATOID ARTHRITIS
     Route: 048
     Dates: start: 20200127

REACTIONS (7)
  - Hypertension [None]
  - Dizziness [None]
  - Skin abrasion [None]
  - Fall [None]
  - Ligament sprain [None]
  - Gastrooesophageal reflux disease [None]
  - Pain in extremity [None]
